FAERS Safety Report 15133899 (Version 1)
Quarter: 2018Q3

REPORT INFORMATION
  Report Type: Spontaneous
  Country: SE (occurrence: SE)
  Receive Date: 20180712
  Receipt Date: 20180712
  Transmission Date: 20181010
  Serious: Yes (Death, Hospitalization)
  Sender: FDA-Public Use
  Company Number: SE-TEVA-2018-SE-923916

PATIENT
  Age: 48 Year
  Sex: Male

DRUGS (2)
  1. NAPROXEN. [Suspect]
     Active Substance: NAPROXEN
     Route: 065
  2. MORPHINE [Suspect]
     Active Substance: MORPHINE
     Route: 048

REACTIONS (4)
  - Lung cancer metastatic [Fatal]
  - Constipation [Unknown]
  - Urinary retention [Unknown]
  - Gastrointestinal haemorrhage [Unknown]

NARRATIVE: CASE EVENT DATE: 20140630
